FAERS Safety Report 5321414-1 (Version None)
Quarter: 2007Q2

REPORT INFORMATION
  Report Type: 
  Country: None (occurrence: None)
  Receive Date: 20070504
  Receipt Date: 20070420
  Transmission Date: 20071010
  Serious: Yes (Hospitalization, Other)
  Sender: FDA-Public Use
  Company Number: SPV1-2007-02222

PATIENT
  Age: 6 Year
  Sex: Male
  Weight: 27.2 kg

DRUGS (2)
  1. ADDERALL 5 [Suspect]
     Indication: AUTISM
     Dosage: 10 MG, 1 X/DAY; QD
     Dates: start: 20060801, end: 20070101
  2. ADDERALL 5 [Suspect]
     Indication: DISTURBANCE IN ATTENTION
     Dosage: 10 MG, 1 X/DAY; QD
     Dates: start: 20060801, end: 20070101

REACTIONS (2)
  - CONVULSION [None]
  - SINUSITIS [None]
